FAERS Safety Report 19278917 (Version 4)
Quarter: 2022Q1

REPORT INFORMATION
  Report Type: Spontaneous
  Country: JP (occurrence: JP)
  Receive Date: 20210520
  Receipt Date: 20220328
  Transmission Date: 20220423
  Serious: Yes (Life-Threatening, Hospitalization, Other)
  Sender: FDA-Public Use
  Company Number: JP-ASTELLAS-2021JP008961

PATIENT
  Sex: Female
  Weight: 2 kg

DRUGS (7)
  1. PROGRAF [Suspect]
     Active Substance: TACROLIMUS
     Indication: Takayasu^s arteritis
     Route: 064
     Dates: start: 20150319, end: 20150520
  2. PROGRAF [Suspect]
     Active Substance: TACROLIMUS
     Route: 064
     Dates: start: 20150521
  3. PROGRAF [Suspect]
     Active Substance: TACROLIMUS
     Route: 064
     Dates: start: 20150625
  4. PROGRAF [Suspect]
     Active Substance: TACROLIMUS
     Indication: Takayasu^s arteritis
     Dosage: 0.5 MG, TWICE DAILY
     Route: 064
     Dates: start: 20150625
  5. PREDONINE [Suspect]
     Active Substance: PREDNISOLONE
     Indication: Takayasu^s arteritis
     Dosage: UNK, UNK, UNKNOWN FREQ.
     Route: 064
     Dates: start: 2008
  6. PREDONINE [Suspect]
     Active Substance: PREDNISOLONE
     Route: 064
     Dates: start: 20110714
  7. PREDONINE [Suspect]
     Active Substance: PREDNISOLONE
     Route: 064
     Dates: start: 20161124

REACTIONS (3)
  - Cyanosis neonatal [Recovered/Resolved]
  - Low birth weight baby [Recovered/Resolved]
  - Exposure via breast milk [Unknown]

NARRATIVE: CASE EVENT DATE: 20181214
